FAERS Safety Report 9252269 (Version 1)
Quarter: 2013Q1

REPORT INFORMATION
  Report Type: Spontaneous
  Country: US (occurrence: None)
  Receive Date: 20130305
  Receipt Date: 20130305
  Transmission Date: 20140127
  Serious: Yes (Hospitalization, Other)
  Sender: FDA-Public Use
  Company Number: 163-21880-12082723

PATIENT
  Age: 66 Year
  Sex: Male
  Weight: 114.31 kg

DRUGS (16)
  1. REVLIMID [Suspect]
     Indication: PLASMA CELL MYELOMA
     Dosage: 7.5 MG, 21 IN 28 D, PO
     Dates: start: 20120806
  2. VELCADE [Concomitant]
  3. ASPIRIN (ACETYLSALICYLIC ACID) [Concomitant]
  4. ASCORBIC ACID (ASCORBIC ACID) [Concomitant]
  5. ATORVASTATIN (ATORVASTATIN) [Concomitant]
  6. CALCIUM (CALCIUM) [Concomitant]
  7. DEXAMETHASONE (DEXAMETHASONE) [Concomitant]
  8. GLUCOSAMINE/CHONDROITIN (CHONDROITIN SODIUM SULFATE W/GLUCOSAMINE HCL) [Concomitant]
  9. IBUPROFEN (IBUPROFEN) [Concomitant]
  10. METAMUCIL (METAMUCIL ^PROCTER + GAMBLE^) [Concomitant]
  11. METOPROLOL (METOPROLOL) [Concomitant]
  12. OMEGA 3 (FISH OIL) [Concomitant]
  13. SAW PALMETTO (SERENOA REPENS) [Concomitant]
  14. VITAMINS [Concomitant]
  15. STOOL SOFTENER (DOCUSATE SODIUM) [Concomitant]
  16. UBIQUINOL (UBIQUINOL) [Concomitant]

REACTIONS (1)
  - Haemoglobin decreased [None]
